FAERS Safety Report 10569719 (Version 2)
Quarter: 2014Q4

REPORT INFORMATION
  Report Type: Spontaneous
  Country: US (occurrence: US)
  Receive Date: 20141107
  Receipt Date: 20141225
  Transmission Date: 20150529
  Serious: No
  Sender: FDA-Public Use
  Company Number: US-009507513-1410USA015478

PATIENT
  Age: 42 Year
  Sex: Male
  Weight: 87.75 kg

DRUGS (3)
  1. SOVALDI [Suspect]
     Active Substance: SOFOSBUVIR
  2. REBETOL [Suspect]
     Active Substance: RIBAVIRIN
     Route: 048
  3. PEGINTRON [Suspect]
     Active Substance: PEGINTERFERON ALFA-2B
     Indication: HEPATITIS C
     Dosage: 150(UNITE UNSPECIFIED), REDIPEN, THERAPY ROUTE: INJECTION
     Dates: start: 201409

REACTIONS (4)
  - Vomiting [Recovered/Resolved]
  - Product quality issue [Unknown]
  - Headache [Recovered/Resolved]
  - Drug dose omission [Unknown]

NARRATIVE: CASE EVENT DATE: 2014
